FAERS Safety Report 4710398-2 (Version None)
Quarter: 2005Q3

REPORT INFORMATION
  Report Type: 
  Country: None (occurrence: None)
  Receive Date: 20050711
  Receipt Date: 20050629
  Transmission Date: 20060218
  Serious: Yes (Death)
  Sender: FDA-Public Use
  Company Number: IL-NOVOPROD-245244

PATIENT
  Sex: Male

DRUGS (2)
  1. NOVOSEVEN [Suspect]
     Indication: TRAUMATIC HAEMORRHAGE
     Dosage: 7.2 MG, SINGLE
     Dates: start: 20050624
  2. NOVOSEVEN [Suspect]
     Dosage: 2.4 MG, SINGLE
     Dates: start: 20050624

REACTIONS (2)
  - EXSANGUINATION [None]
  - ORGAN FAILURE [None]
